FAERS Safety Report 17889543 (Version 1)
Quarter: 2020Q2

REPORT INFORMATION
  Report Type: Report from Study
  Country: US (occurrence: US)
  Receive Date: 20200612
  Receipt Date: 20200612
  Transmission Date: 20200714
  Serious: Yes (Hospitalization)
  Sender: FDA-Public Use
  Company Number: US-ROCHE-2311409

PATIENT
  Age: 76 Year
  Sex: Female
  Weight: 55.8 kg

DRUGS (11)
  1. CABOZANTINIB [Suspect]
     Active Substance: CABOZANTINIB
     Indication: HEPATOCELLULAR CARCINOMA
     Dosage: DATE OF MOST RECENT DOSE PRIOR TO SAE: 22/APR/2019?DATE OF MOST RECENT DOSE PRIOR TO SAE: 29/APR/201
     Route: 048
     Dates: start: 20190409, end: 20190430
  2. CABOZANTINIB [Suspect]
     Active Substance: CABOZANTINIB
     Route: 048
     Dates: start: 20190605
  3. ONDANSETRON [Concomitant]
     Active Substance: ONDANSETRON
  4. ZESTRIL [Concomitant]
     Active Substance: LISINOPRIL
  5. PRILOSEC [Concomitant]
     Active Substance: OMEPRAZOLE MAGNESIUM
  6. ATEZOLIZUMAB. [Suspect]
     Active Substance: ATEZOLIZUMAB
     Route: 042
     Dates: start: 20200605
  7. SODIUM CHLORIDE. [Concomitant]
     Active Substance: SODIUM CHLORIDE
  8. CETIRIZINE [Concomitant]
     Active Substance: CETIRIZINE HYDROCHLORIDE
  9. ATEZOLIZUMAB. [Suspect]
     Active Substance: ATEZOLIZUMAB
     Indication: HEPATOCELLULAR CARCINOMA
     Dosage: 29/APR/2019, SHE RECEIVED MOST RECENT DOSE PRIOR TO SAE.
     Route: 042
     Dates: start: 20190409, end: 20190430
  10. NORVASC [Concomitant]
     Active Substance: AMLODIPINE BESYLATE
  11. SYNTHROID [Concomitant]
     Active Substance: LEVOTHYROXINE SODIUM

REACTIONS (2)
  - Hyponatraemia [Recovered/Resolved]
  - Transaminases increased [Recovered/Resolved]

NARRATIVE: CASE EVENT DATE: 20190423
